FAERS Safety Report 5646745-7 (Version None)
Quarter: 2008Q1

REPORT INFORMATION
  Report Type: 
  Country: None (occurrence: None)
  Receive Date: 20080303
  Receipt Date: 20080222
  Transmission Date: 20080703
  Serious: Yes (Other)
  Sender: FDA-Public Use
  Company Number: JP-BRISTOL-MYERS SQUIBB COMPANY-14088561

PATIENT
  Age: 58 Year
  Sex: Male

DRUGS (10)
  1. ABILIFY [Suspect]
     Indication: SCHIZOPHRENIA
     Route: 048
     Dates: start: 20070531, end: 20070724
  2. SERENACE [Concomitant]
     Dates: start: 20070724
  3. AKINETON [Concomitant]
     Dates: start: 20070104
  4. SEPAZON [Concomitant]
     Dates: start: 20070104
  5. ZYPREXA [Concomitant]
     Dates: start: 20070104, end: 20070724
  6. ROHYPNOL [Concomitant]
     Dates: start: 20070104, end: 20070724
  7. HALCION [Concomitant]
     Dates: start: 20070104, end: 20070724
  8. GLYSENNID [Concomitant]
     Dates: start: 20070104, end: 20070625
  9. SENNOSIDE [Concomitant]
     Dates: start: 20070626
  10. MAGNESIUM OXIDE [Concomitant]
     Dates: start: 20070104

REACTIONS (2)
  - HALLUCINATION [None]
  - PARANOIA [None]
